FAERS Safety Report 9660870 (Version 1)
Quarter: 2013Q4

REPORT INFORMATION
  Report Type: Spontaneous
  Country: IT (occurrence: IT)
  Receive Date: 20131031
  Receipt Date: 20131031
  Transmission Date: 20140711
  Serious: Yes (Other)
  Sender: FDA-Public Use
  Company Number: IT-PFIZER INC-2013309520

PATIENT
  Age: 65 Year
  Sex: Male
  Weight: 65 kg

DRUGS (7)
  1. IRINOTECAN HCL [Suspect]
     Indication: RECTAL CANCER METASTATIC
     Dosage: 300 MG, CYCLIC
     Route: 042
     Dates: start: 20130201, end: 20130316
  2. IRINOTECAN HCL [Suspect]
     Dosage: UNK
     Route: 042
     Dates: start: 20130403, end: 20130511
  3. AVASTIN [Suspect]
     Indication: RECTAL CANCER METASTATIC
     Dosage: 325 MG, CYCLIC
     Route: 042
     Dates: start: 20130216, end: 20130316
  4. FLUOROURACIL [Suspect]
     Indication: RECTAL CANCER METASTATIC
     Dosage: 4760 MG, CYCLIC
     Route: 042
     Dates: start: 20130201, end: 20130511
  5. LOPRESOR [Concomitant]
     Indication: HYPERTENSION
  6. MICARDIS [Concomitant]
     Indication: HYPERTENSION
  7. LEVOFOLINIC ACID [Concomitant]
     Dosage: UNK
     Dates: start: 20130112, end: 20130511

REACTIONS (6)
  - Diarrhoea haemorrhagic [Recovering/Resolving]
  - Abdominal pain [Recovering/Resolving]
  - Asthenia [Recovering/Resolving]
  - Blood pressure increased [Recovering/Resolving]
  - Disease progression [Unknown]
  - Rectal cancer metastatic [Unknown]
